FAERS Safety Report 4750489-3 (Version None)
Quarter: 2005Q3

REPORT INFORMATION
  Report Type: 
  Country: None (occurrence: None)
  Receive Date: 20050823
  Receipt Date: 20050816
  Transmission Date: 20060218
  Serious: Yes (Other)
  Sender: FDA-Public Use
  Company Number: GB-GLAXOSMITHKLINE-B0390806A

PATIENT
  Sex: Female

DRUGS (2)
  1. ZYBAN [Suspect]
     Route: 048
     Dates: start: 20050101
  2. NO CONCURRENT MEDICATION [Concomitant]

REACTIONS (2)
  - MUSCLE TWITCHING [None]
  - PARKINSONISM [None]
